FAERS Safety Report 13752785 (Version 2)
Quarter: 2017Q3

REPORT INFORMATION
  Report Type: Report from Study
  Country: US (occurrence: US)
  Receive Date: 20170714
  Receipt Date: 20170810
  Transmission Date: 20171127
  Serious: Yes (Other)
  Sender: FDA-Public Use
  Company Number: US-ACADIA PHARMACEUTICALS INC.-ACA-2017-004573

PATIENT
  Age: 85 Year
  Sex: Male

DRUGS (5)
  1. NUPLAZID [Suspect]
     Active Substance: PIMAVANSERIN TARTRATE
     Indication: PARKINSON^S DISEASE
     Dosage: 34 MG, QD
     Route: 048
     Dates: start: 20170630, end: 20170702
  2. SYNTHROID [Concomitant]
     Active Substance: LEVOTHYROXINE SODIUM
     Indication: PRODUCT USED FOR UNKNOWN INDICATION
  3. SINEMET [Concomitant]
     Active Substance: CARBIDOPA\LEVODOPA
     Indication: PRODUCT USED FOR UNKNOWN INDICATION
  4. FLUDROCORTISON [Concomitant]
     Active Substance: FLUDROCORTISONE
     Indication: PRODUCT USED FOR UNKNOWN INDICATION
  5. MIDODRINE [Concomitant]
     Active Substance: MIDODRINE
     Indication: PRODUCT USED FOR UNKNOWN INDICATION

REACTIONS (7)
  - Balance disorder [Unknown]
  - Agitation [Unknown]
  - Mobility decreased [Unknown]
  - Loss of consciousness [Unknown]
  - Speech disorder [Unknown]
  - Catatonia [Recovering/Resolving]
  - Abnormal behaviour [Recovering/Resolving]

NARRATIVE: CASE EVENT DATE: 201707
